FAERS Safety Report 4517147-1 (Version None)
Quarter: 2004Q4

REPORT INFORMATION
  Report Type: 
  Country: None (occurrence: None)
  Receive Date: 20041005
  Receipt Date: 20031204
  Transmission Date: 20050328
  Serious: Yes (Other)
  Sender: FDA-Public Use
  Company Number: US-JNJFOC-20031203776

PATIENT
  Age: 31 Year
  Sex: Female
  Weight: 101.1521 kg

DRUGS (1)
  1. ORAL CONTRACEPTIVE NOS (ORAL CONTRACEPTIVE NOS) TABLETS [Suspect]
     Indication: CONTRACEPTION
     Dosage: ORAL
     Route: 048

REACTIONS (1)
  - DEEP VEIN THROMBOSIS [None]
